FAERS Safety Report 13567800 (Version 1)
Quarter: 2017Q2

REPORT INFORMATION
  Report Type: Spontaneous
  Country: US (occurrence: US)
  Receive Date: 20170522
  Receipt Date: 20170522
  Transmission Date: 20170830
  Serious: No
  Sender: FDA-Public Use
  Company Number: PHEH2017US014196

PATIENT
  Sex: Female

DRUGS (4)
  1. IBRANCE [Suspect]
     Active Substance: PALBOCICLIB
     Indication: BREAST CANCER
     Dosage: 125 MG, QD (DAILY FOR 21 ON ,7 OFF)
     Route: 048
     Dates: start: 20170110, end: 20170130
  2. IBRANCE [Suspect]
     Active Substance: PALBOCICLIB
     Dosage: 125 MG, UNK (3 WEEKS ON/1 WEEK OFF)
     Route: 048
     Dates: start: 20170214, end: 20170301
  3. IBRANCE [Suspect]
     Active Substance: PALBOCICLIB
     Dosage: 125 MG, UNK (DAILY, 18 DAYS ON-10 DAYS BREAK)
     Route: 048
     Dates: start: 20170314
  4. ZOFRAN [Suspect]
     Active Substance: ONDANSETRON HYDROCHLORIDE
     Indication: NAUSEA
     Dosage: UNK, QD
     Route: 065

REACTIONS (6)
  - Irritability [Unknown]
  - Platelet count decreased [Recovered/Resolved]
  - Memory impairment [Unknown]
  - Platelet count decreased [Recovered/Resolved]
  - White blood cell count decreased [Recovered/Resolved]
  - White blood cell count decreased [Recovered/Resolved]

NARRATIVE: CASE EVENT DATE: 20170131
